FAERS Safety Report 10215852 (Version 1)
Quarter: 2014Q2

REPORT INFORMATION
  Report Type: Report from Study
  Country: CA (occurrence: CA)
  Receive Date: 20140604
  Receipt Date: 20140604
  Transmission Date: 20141212
  Serious: Yes (Other)
  Sender: FDA-Public Use
  Company Number: CA-JNJFOC-20140518527

PATIENT
  Age: 51 Year
  Sex: Female
  Weight: 99.4 kg

DRUGS (5)
  1. REMICADE [Suspect]
     Indication: CROHN^S DISEASE
     Route: 042
     Dates: start: 20131121
  2. REMICADE [Suspect]
     Indication: CROHN^S DISEASE
     Route: 042
     Dates: start: 20140527
  3. METOPROLOL [Concomitant]
     Route: 065
  4. METHOTREXATE [Concomitant]
     Route: 065
  5. PANTOPRAZOLE [Concomitant]
     Route: 065

REACTIONS (4)
  - Infusion related reaction [Recovered/Resolved]
  - Chest discomfort [Recovered/Resolved]
  - Oxygen saturation decreased [Recovered/Resolved]
  - Erythema [Recovered/Resolved]
